FAERS Safety Report 12109482 (Version 1)
Quarter: 2016Q1

REPORT INFORMATION
  Report Type: Spontaneous
  Country: US (occurrence: US)
  Receive Date: 20160224
  Receipt Date: 20160224
  Transmission Date: 20160526
  Serious: No
  Sender: FDA-Public Use
  Company Number: US-PERRIGO-15US011833

PATIENT
  Age: 53 Year
  Sex: Male
  Weight: 71.66 kg

DRUGS (2)
  1. TESTOSTERONE 1% 1C2 [Suspect]
     Active Substance: TESTOSTERONE
     Dosage: 50 MG, QD
     Route: 061
     Dates: start: 20151111
  2. TESTOSTERONE 1% 1C2 [Suspect]
     Active Substance: TESTOSTERONE
     Indication: BLOOD TESTOSTERONE DECREASED
     Dosage: 25 MG, QD
     Route: 061
     Dates: start: 20151101, end: 20151110

REACTIONS (2)
  - Underdose [Unknown]
  - Drug ineffective [Unknown]

NARRATIVE: CASE EVENT DATE: 20151101
